FAERS Safety Report 9922719 (Version 1)
Quarter: 2014Q1

REPORT INFORMATION
  Report Type: Spontaneous
  Country: US (occurrence: US)
  Receive Date: 20140225
  Receipt Date: 20140225
  Transmission Date: 20141002
  Serious: Yes (Hospitalization)
  Sender: FDA-Public Use
  Company Number: PHHY2014US018135

PATIENT
  Age: 16 Year
  Sex: Male

DRUGS (21)
  1. VALPROIC ACID [Suspect]
     Indication: CONVULSION
     Dosage: 1000 MG, DAILY
  2. VALPROIC ACID [Suspect]
     Dosage: 750 MG, DAILY
  3. GUANFACINE HYDROCHLORIDE [Suspect]
  4. CARBAMAZEPINE [Suspect]
     Indication: CONVULSION
  5. OXCARBAZEPINE [Suspect]
     Indication: CONVULSION
  6. RILUZOLE [Suspect]
     Dosage: 100 MG, DAILY
  7. ZIPRASIDONE [Suspect]
  8. LAMOTRIGINE [Suspect]
  9. SERTRALINE [Suspect]
  10. RISPERIDONE [Suspect]
  11. MEMANTINE HYDROCHLORIDE [Suspect]
  12. LORAZEPAM [Suspect]
     Dosage: 22 MG, DAILY
  13. LORAZEPAM [Suspect]
     Dosage: 1 MG, UNK
  14. ZONISAMIDE [Suspect]
     Indication: CONVULSION
     Dosage: 100 MG, TWICE A DAY
  15. PHENYTOIN [Suspect]
  16. TOPIRAMATE [Suspect]
  17. LITHIUM [Suspect]
  18. METHOHEXITAL [Concomitant]
     Indication: SEDATION
     Dosage: 80 MG, UNK
  19. SUCCINYL CHOLINE [Concomitant]
     Indication: MUSCLE RELAXANT THERAPY
  20. GLYCOPYRROLATE [Concomitant]
     Indication: ARRHYTHMIA
     Dosage: 0.2 MG, UNK
  21. FLUMAZENIL [Concomitant]
     Dosage: 0.5 MG, UNK

REACTIONS (2)
  - Aggression [Recovered/Resolved]
  - Drug ineffective [Unknown]
